FAERS Safety Report 6637552-7 (Version None)
Quarter: 2010Q1

REPORT INFORMATION
  Report Type: 
  Country: None (occurrence: None)
  Receive Date: 20100317
  Receipt Date: 20100305
  Transmission Date: 20100710
  Serious: Yes (Other)
  Sender: FDA-Public Use
  Company Number: HR-WYE-H14040710

PATIENT
  Age: 78 Year
  Sex: Male

DRUGS (5)
  1. CONTROLOC [Suspect]
     Indication: NAUSEA
     Dosage: UNKNOWN
     Dates: start: 20100210, end: 20100305
  2. CONTROLOC [Suspect]
     Indication: DIARRHOEA
  3. CONTROLOC [Suspect]
     Indication: VOMITING
  4. VITAMINS [Concomitant]
     Dosage: UNSPECIFIED
  5. CAPECITABINE [Concomitant]
     Indication: SMALL INTESTINE CARCINOMA
     Dosage: 2 X 15 DAY, 7 DAY INTERVAL
     Dates: start: 20100114

REACTIONS (2)
  - OEDEMA PERIPHERAL [None]
  - RASH VESICULAR [None]
